FAERS Safety Report 20069471 (Version 1)
Quarter: 2021Q4

REPORT INFORMATION
  Report Type: Spontaneous
  Country: US (occurrence: None)
  Receive Date: 20211112
  Receipt Date: 20211112
  Transmission Date: 20220303
  Serious: Yes (Hospitalization)
  Sender: FDA-Public Use
  Company Number: None

PATIENT
  Sex: Female

DRUGS (1)
  1. DEFERASIROX [Suspect]
     Active Substance: DEFERASIROX
     Indication: Anaemia
     Dosage: FREQUENCY : DAILY;?
     Route: 048
     Dates: start: 20210610

REACTIONS (3)
  - Sickle cell anaemia with crisis [None]
  - Pain [None]
  - Therapy interrupted [None]
